FAERS Safety Report 21680478 (Version 1)
Quarter: 2022Q4

REPORT INFORMATION
  Report Type: Spontaneous
  Country: LU (occurrence: LU)
  Receive Date: 20221205
  Receipt Date: 20221205
  Transmission Date: 20230112
  Serious: Yes (Death)
  Sender: FDA-Public Use
  Company Number: None

PATIENT
  Age: 42 Year
  Sex: Female
  Weight: 57 kg

DRUGS (25)
  1. RISPERDAL [Suspect]
     Active Substance: RISPERIDONE
     Indication: Behaviour disorder
     Dosage: IN THE EVENING
     Route: 048
     Dates: start: 20190930
  2. RISPERDAL [Suspect]
     Active Substance: RISPERIDONE
     Dosage: IN THE MORNING
     Route: 048
     Dates: start: 20170807
  3. COMIRNATY [Suspect]
     Active Substance: TOZINAMERAN
     Indication: COVID-19 immunisation
     Dosage: R2
     Route: 030
     Dates: start: 20221102, end: 20221102
  4. TRAMADOL [Suspect]
     Active Substance: TRAMADOL
     Indication: Pain
     Dosage: IN THE MORNING
     Route: 048
     Dates: start: 20221028
  5. TRAMADOL [Suspect]
     Active Substance: TRAMADOL
     Indication: Pain
     Dosage: IN THE EVENING
     Route: 048
     Dates: start: 20221024
  6. INVESTIGATIONAL PRODUCT [Suspect]
     Active Substance: INVESTIGATIONAL PRODUCT
     Indication: Prophylaxis
     Dosage: INITIALLY STARTED ON 01/10/2022, 10 DAYS PER MONTH: 1 TO 10/10/2022 (PAST DRUG),  RESTARTED ON 1/11/
     Route: 048
     Dates: start: 20221101
  7. FERROUS GLUCONATE [Suspect]
     Active Substance: FERROUS GLUCONATE
     Indication: Anaemia
     Dosage: IN THE EVENING
     Route: 048
     Dates: start: 20221028
  8. ZARONTIN [Concomitant]
     Active Substance: ETHOSUXIMIDE
     Indication: Epilepsy
     Dosage: 10 ML IN THE MORNING, 10 ML DOSE AT NOON, 10 ML AT BEDTIME
     Route: 048
     Dates: start: 20051107
  9. CALCIUM CARBONATE [Concomitant]
     Active Substance: CALCIUM CARBONATE
     Indication: Hypocalcaemia
     Dosage: 2 DOSE IN THE MORNING
     Route: 048
     Dates: start: 20170721
  10. CRANBEROLA [ASCORBIC ACID] [Concomitant]
     Indication: Urinary tract infection
     Route: 048
     Dates: start: 20200928
  11. TRAZODONE [Concomitant]
     Active Substance: TRAZODONE HYDROCHLORIDE
     Indication: Agitation
     Dosage: 0.5 DOSE IN THE MORNING, 0.5 DOSE AT NOON, 1 IN THE EVENING, 1 AT BEDTIME
     Route: 048
     Dates: start: 20050712
  12. ETILEFRINE HYDROCHLORIDE [Concomitant]
     Active Substance: ETILEFRINE HYDROCHLORIDE
     Indication: Hypotension
     Route: 048
     Dates: start: 20050321
  13. MELPERONE [Concomitant]
     Active Substance: MELPERONE
     Indication: Behaviour disorder
     Route: 048
     Dates: start: 20190829
  14. EUTHYROX [Concomitant]
     Active Substance: LEVOTHYROXINE SODIUM
     Indication: Hypothyroidism
     Dosage: IN THE MORNING
     Route: 048
     Dates: start: 20050321
  15. NOVALGIN (METAMIZOLE SODIUM) [Concomitant]
     Active Substance: METAMIZOLE SODIUM
     Indication: Pain
     Route: 048
     Dates: start: 20221014
  16. BRIVIACT [Concomitant]
     Active Substance: BRIVARACETAM
     Indication: Epilepsy
     Route: 048
     Dates: start: 20220205
  17. LORAZEPAM [Concomitant]
     Active Substance: LORAZEPAM
     Indication: Agitation
     Dosage: 1 DOSE AT NOON, 1 IN THE EVENING
     Route: 048
     Dates: start: 20190826
  18. CHOLECALCIFEROL [Concomitant]
     Active Substance: CHOLECALCIFEROL
     Indication: Vitamin D deficiency
     Route: 048
     Dates: start: 20090806
  19. ASPIRIN [Concomitant]
     Active Substance: ASPIRIN
     Indication: Stent placement
     Dosage: AT NOON
     Route: 048
     Dates: start: 20050322
  20. ESOMEPRAZOLE SODIUM [Concomitant]
     Active Substance: ESOMEPRAZOLE SODIUM
     Indication: Regurgitation
     Dosage: IN THE MORNING
     Route: 048
     Dates: start: 20220802
  21. MOVICOL [Concomitant]
     Active Substance: POLYETHYLENE GLYCOL 3350\POTASSIUM CHLORIDE\SODIUM BICARBONATE\SODIUM CHLORIDE
     Indication: Constipation
     Dosage: 2 DOSES IN THE MORNING, 1 AT NOON
     Route: 048
     Dates: start: 20050321
  22. DIAZEPAM [Concomitant]
     Active Substance: DIAZEPAM
     Indication: Agitation
     Dosage: 2 DOSES IN THE MORNING, 1 DOSE IN THE EVENING, 1 DOSE AT BEDTIME
     Route: 048
     Dates: start: 20090210
  23. DEPO-PROVERA [Concomitant]
     Active Substance: MEDROXYPROGESTERONE ACETATE
     Indication: Contraception
     Route: 030
     Dates: start: 20050321
  24. TOPAMAX [Concomitant]
     Active Substance: TOPIRAMATE
     Indication: Epilepsy
     Dosage: 2 DOSES IN THE EVENING
     Route: 048
     Dates: start: 20090317
  25. PIPAMPERONE [Concomitant]
     Active Substance: PIPAMPERONE
     Indication: Behaviour disorder
     Dosage: 1 DOSE IN THE MORNING, 2 DOSES AT NOON, 2 DOSES AT BEDTIME
     Route: 048
     Dates: start: 20130704

REACTIONS (4)
  - Localised oedema [Fatal]
  - Respiration abnormal [Fatal]
  - Respiratory arrest [Fatal]
  - Face oedema [Fatal]

NARRATIVE: CASE EVENT DATE: 20221102
